FAERS Safety Report 11098347 (Version 2)
Quarter: 2015Q2

REPORT INFORMATION
  Report Type: Report from Study
  Country: IT (occurrence: IT)
  Receive Date: 20150507
  Receipt Date: 20150520
  Transmission Date: 20150821
  Serious: Yes (Hospitalization)
  Sender: FDA-Public Use
  Company Number: PHHO2015IT007545

PATIENT
  Age: 48 Year

DRUGS (3)
  1. ZOLEDRONATE [Suspect]
     Active Substance: ZOLEDRONIC ACID
     Indication: BONE LOSS
     Dosage: 4 MG, ONCE
     Route: 048
     Dates: start: 20090803, end: 20100119
  2. TRIPTORELIN [Suspect]
     Active Substance: TRIPTORELIN
     Indication: BONE LOSS
     Dosage: 3.75 MG, EVERY 28 DAYS
     Route: 030
     Dates: start: 20090803
  3. CGS 20267 [Suspect]
     Active Substance: LETROZOLE
     Indication: BONE LOSS
     Dosage: 2.5 MG, QD
     Route: 048
     Dates: start: 20090803, end: 20100119

REACTIONS (1)
  - Myocardial infarction [Recovered/Resolved]

NARRATIVE: CASE EVENT DATE: 20091210
